FAERS Safety Report 24654569 (Version 2)
Quarter: 2024Q4

REPORT INFORMATION
  Report Type: Spontaneous
  Country: CN (occurrence: CN)
  Receive Date: 20241122
  Receipt Date: 20241230
  Transmission Date: 20250114
  Serious: Yes (Other)
  Sender: MEITHEAL PHARMACEUTICALS
  Company Number: CN-MEITHEAL-2024MPLIT00390

PATIENT
  Age: 65 Year
  Sex: Male

DRUGS (6)
  1. ETOPOSIDE [Suspect]
     Active Substance: ETOPOSIDE
     Indication: Testicular germ cell tumour mixed
     Dosage: ON DAYS 1 TO 5 EVERY THREE WEEKS FOR FOUR CYCLES
     Route: 065
     Dates: start: 20190920
  2. ETOPOSIDE [Suspect]
     Active Substance: ETOPOSIDE
     Dosage: FOUR CYCLES
     Route: 065
     Dates: start: 201912
  3. ETOPOSIDE [Suspect]
     Active Substance: ETOPOSIDE
     Dosage: SECOND-LINE CHEMOTHERAPY
     Route: 065
     Dates: end: 202003
  4. CISPLATIN [Suspect]
     Active Substance: CISPLATIN
     Indication: Testicular germ cell tumour mixed
     Dosage: ON DAYS 1 TO 5 EVERY THREE WEEKS FOR FOUR CYCLES
     Route: 065
     Dates: start: 20190920
  5. OXALIPLATIN [Concomitant]
     Active Substance: OXALIPLATIN
     Dosage: DAY 2 EVERY THREE WEEKS
     Route: 065
     Dates: start: 20200327, end: 20200605
  6. GEMCITABINE [Concomitant]
     Active Substance: GEMCITABINE
     Dosage: ON DAYS 1 AND 8
     Route: 065
     Dates: start: 20200327, end: 20200605

REACTIONS (2)
  - Renal injury [Unknown]
  - Myelosuppression [Unknown]
